FAERS Safety Report 25858730 (Version 1)
Quarter: 2025Q3

REPORT INFORMATION
  Report Type: Spontaneous
  Country: US (occurrence: None)
  Receive Date: 20250927
  Receipt Date: 20250927
  Transmission Date: 20251020
  Serious: Yes (Hospitalization)
  Sender: FDA-CTU
  Company Number: None

PATIENT
  Age: 71 Year
  Sex: Male
  Weight: 102.6 kg

DRUGS (1)
  1. DURVALUMAB [Suspect]
     Active Substance: DURVALUMAB
     Dates: end: 20250701

REACTIONS (11)
  - Pneumonia [None]
  - Sepsis [None]
  - Pneumonitis [None]
  - Pneumonia [None]
  - Lung consolidation [None]
  - Lung opacity [None]
  - Encephalopathy [None]
  - Blood culture positive [None]
  - Bacterial infection [None]
  - Culture urine positive [None]
  - Escherichia infection [None]

NARRATIVE: CASE EVENT DATE: 20250919
